FAERS Safety Report 18969281 (Version 2)
Quarter: 2021Q1

REPORT INFORMATION
  Report Type: Spontaneous
  Country: TR (occurrence: TR)
  Receive Date: 20210304
  Receipt Date: 20210311
  Transmission Date: 20210420
  Serious: Yes (Hospitalization, Other)
  Sender: FDA-Public Use
  Company Number: TR-JNJFOC-20201231498

PATIENT
  Age: 66 Year
  Sex: Male
  Weight: 96 kg

DRUGS (3)
  1. CORASPIN 100 MG [Suspect]
     Active Substance: ASPIRIN
  2. XARELTO [Suspect]
     Active Substance: RIVAROXABAN
     Indication: THROMBOSIS PROPHYLAXIS
     Dosage: 15 MG, UNK
     Route: 048
     Dates: start: 202011
  3. CORASPIN 100 MG [Suspect]
     Active Substance: ASPIRIN
     Indication: THROMBOSIS PROPHYLAXIS
     Dosage: UNK, QD
     Route: 048
     Dates: start: 20201102

REACTIONS (10)
  - Skin lesion [Recovering/Resolving]
  - Therapeutic response unexpected [Not Recovered/Not Resolved]
  - Gait disturbance [Unknown]
  - Haemorrhage [Recovering/Resolving]
  - COVID-19 [Unknown]
  - Off label use [Unknown]
  - Pruritus [Recovering/Resolving]
  - Heart rate increased [Unknown]
  - Intentional product misuse [Recovered/Resolved]
  - Headache [Unknown]

NARRATIVE: CASE EVENT DATE: 202011
